FAERS Safety Report 6700985-4 (Version None)
Quarter: 2010Q2

REPORT INFORMATION
  Report Type: 
  Country: None (occurrence: None)
  Receive Date: 20100428
  Receipt Date: 20100419
  Transmission Date: 20101027
  Serious: Yes (Hospitalization)
  Sender: FDA-Public Use
  Company Number: DZ-PFIZER INC-2010048896

PATIENT
  Age: 24 Year
  Sex: Male

DRUGS (1)
  1. LYRICA [Suspect]
     Indication: DIABETIC NEUROPATHY
     Dosage: 50 MG, 3X/DAY
     Route: 048

REACTIONS (5)
  - DYSPNOEA [None]
  - HYPOGLYCAEMIA [None]
  - SOPOR [None]
  - TACHYCARDIA [None]
  - WEIGHT INCREASED [None]
